FAERS Safety Report 7538217-X (Version None)
Quarter: 2011Q2

REPORT INFORMATION
  Report Type: 
  Country: None (occurrence: None)
  Receive Date: 20110609
  Receipt Date: 20030730
  Transmission Date: 20111010
  Serious: Yes (Hospitalization, Other)
  Sender: FDA-Public Use
  Company Number: PHHO2003CA07632

PATIENT
  Sex: Female

DRUGS (1)
  1. CLOZAPINE [Suspect]
     Indication: SCHIZOPHRENIA
     Dosage: 125 MG, QD
     Dates: start: 20030328

REACTIONS (5)
  - CEREBROVASCULAR ACCIDENT [None]
  - TACHYCARDIA [None]
  - HEMIPARESIS [None]
  - LEUKOCYTOSIS [None]
  - LOBAR PNEUMONIA [None]
